FAERS Safety Report 10037403 (Version 1)
Quarter: 2014Q1

REPORT INFORMATION
  Report Type: Spontaneous
  Country: DE (occurrence: None)
  Receive Date: 20140324
  Receipt Date: 20140324
  Transmission Date: 20141002
  Serious: Yes (Hospitalization, Other)
  Sender: FDA-Public Use
  Company Number: FK201400907

PATIENT
  Age: 6 Year
  Sex: Male

DRUGS (9)
  1. DEXAMETHASONE INJECTION (MANUFACTURER UNKNOWN) (DEXAMETHASONE SODIUM PHOSPHATE) (DEXAMETHASONE SODIUM PHOSPHATE) [Suspect]
     Indication: ACUTE LYMPHOCYTIC LEUKAEMIA RECURRENT
     Dates: start: 201301
  2. METHOTREXATE (MANUFACTURER UNKNOWN) (METHOTREXATE) (METHOTREXATE) [Suspect]
     Indication: ACUTE LYMPHOCYTIC LEUKAEMIA RECURRENT
     Dates: start: 201301
  3. CYTARABINE (MANUFACTURER UNKNOWN) (CYTARABINE) (CYTARABINE) [Suspect]
     Indication: ACUTE LYMPHOCYTIC LEUKAEMIA RECURRENT
  4. IDARUBICIN HYDROCHLORIDE [Suspect]
     Indication: ACUTE LYMPHOCYTIC LEUKAEMIA RECURRENT
  5. VINCRISTINE (VINCRISTINE) [Suspect]
     Indication: ACUTE LYMPHOCYTIC LEUKAEMIA RECURRENT
     Dates: start: 201301
  6. PEG-ASPARAGINASE [Suspect]
     Indication: ACUTE LYMPHOCYTIC LEUKAEMIA RECURRENT
     Dates: start: 201301
  7. OSELTAMIVIR [Suspect]
     Indication: PNEUMONIA INFLUENZAL
     Dates: start: 201302
  8. UNSPECIFIED INGREDIENTS [Suspect]
     Indication: ACUTE LYMPHOCYTIC LEUKAEMIA RECURRENT
     Dosage: DAYS 1 AND 15
  9. ANTIBIOTICS (ANTIBIOTICS) [Suspect]
     Indication: PNEUMONIA INFLUENZAL

REACTIONS (9)
  - Drug interaction [None]
  - Hypertriglyceridaemia [None]
  - Pneumonia influenzal [None]
  - Ascites [None]
  - Pseudohyponatraemia [None]
  - Somnolence [None]
  - Cushing^s syndrome [None]
  - Oedema peripheral [None]
  - Headache [None]
